FAERS Safety Report 4425358-9 (Version None)
Quarter: 2004Q3

REPORT INFORMATION
  Report Type: 
  Country: None (occurrence: None)
  Receive Date: 20040811
  Receipt Date: 20040727
  Transmission Date: 20050211
  Serious: Yes (Other)
  Sender: FDA-Public Use
  Company Number: CA-JNJFOC-20040401066

PATIENT
  Sex: Female

DRUGS (5)
  1. TOPAMAX [Suspect]
     Dosage: DRUG WAS TAPERED BEFORE DISCONTINUATION.
     Route: 049
     Dates: start: 20040101, end: 20040501
  2. TOPAMAX [Suspect]
     Route: 049
     Dates: start: 20040101, end: 20040501
  3. GABAPENTIN [Concomitant]
     Indication: NEUROPATHIC PAIN
  4. ANAPROX [Concomitant]
  5. ANAPROX [Concomitant]
     Indication: PAIN

REACTIONS (5)
  - MACULOPATHY [None]
  - PHOTOPSIA [None]
  - RETINAL TOXICITY [None]
  - SCAR [None]
  - VISUAL DISTURBANCE [None]
